FAERS Safety Report 10213210 (Version 1)
Quarter: 2014Q2

REPORT INFORMATION
  Report Type: Other
  Country: GR (occurrence: GR)
  Receive Date: 20140603
  Receipt Date: 20140603
  Transmission Date: 20141212
  Serious: Yes (Other)
  Sender: FDA-Public Use
  Company Number: GR-BRISTOL-MYERS SQUIBB COMPANY-20888418

PATIENT
  Age: 35 Year
  Sex: Male

DRUGS (6)
  1. MITOMYCIN-C [Suspect]
     Indication: DESMOPLASTIC SMALL ROUND CELL TUMOUR
     Dosage: INJECTION
     Route: 065
  2. ETOPOSIDE [Suspect]
     Indication: DESMOPLASTIC SMALL ROUND CELL TUMOUR
  3. IFOSFAMIDE [Suspect]
     Indication: DESMOPLASTIC SMALL ROUND CELL TUMOUR
  4. ENDOXAN [Suspect]
     Indication: DESMOPLASTIC SMALL ROUND CELL TUMOUR
  5. ADRIAMYCIN [Suspect]
     Indication: DESMOPLASTIC SMALL ROUND CELL TUMOUR
  6. VINCRISTINE [Suspect]
     Indication: DESMOPLASTIC SMALL ROUND CELL TUMOUR

REACTIONS (6)
  - Drug ineffective [Unknown]
  - Pancytopenia [Unknown]
  - Febrile neutropenia [Unknown]
  - Subclavian vein thrombosis [Unknown]
  - Mucosal inflammation [Unknown]
  - Dysphagia [Unknown]
